FAERS Safety Report 8268331-5 (Version None)
Quarter: 2012Q2

REPORT INFORMATION
  Report Type: 
  Country: None (occurrence: None)
  Receive Date: 20120409
  Receipt Date: 20120328
  Transmission Date: 20120825
  Serious: Yes (Hospitalization)
  Sender: FDA-Public Use
  Company Number: LT-TEVA-331020ISR

PATIENT
  Age: 24 Year
  Sex: Female
  Weight: 90 kg

DRUGS (2)
  1. METOCLOPRAMIDE [Suspect]
     Indication: SUICIDAL IDEATION
     Dosage: 10 TABLET;
     Route: 048
     Dates: start: 20120323, end: 20120323
  2. RAMIPRIL [Suspect]
     Indication: SUICIDAL IDEATION
     Dosage: 15 TABLET;
     Route: 048
     Dates: start: 20120323, end: 20120323

REACTIONS (7)
  - INTENTIONAL OVERDOSE [None]
  - BLOOD PRESSURE INCREASED [None]
  - AGITATION [None]
  - COORDINATION ABNORMAL [None]
  - MULTIPLE DRUG OVERDOSE INTENTIONAL [None]
  - VOMITING [None]
  - SOMNOLENCE [None]
